FAERS Safety Report 5530815-8 (Version None)
Quarter: 2007Q4

REPORT INFORMATION
  Report Type: 
  Country: None (occurrence: None)
  Receive Date: 20071130
  Receipt Date: 20071128
  Transmission Date: 20080405
  Serious: Yes (Hospitalization, Other)
  Sender: FDA-Public Use
  Company Number: JP-WYE-H00667407

PATIENT
  Sex: Female
  Weight: 62 kg

DRUGS (8)
  1. RHEUMATREX [Suspect]
     Indication: RHEUMATOID ARTHRITIS
     Route: 048
     Dates: start: 20060825, end: 20060904
  2. RHEUMATREX [Suspect]
     Dates: start: 20060911, end: 20061002
  3. SOLON [Concomitant]
     Indication: GASTRITIS
     Route: 048
     Dates: start: 20060818, end: 20061012
  4. VOLTAREN [Concomitant]
     Indication: ANALGESIA
     Dosage: UNKNOWN DOSE AND FREQUENCY
     Dates: start: 20060818, end: 20061012
  5. PREDNISOLONE [Concomitant]
     Dosage: UNSPECIFIED GEL DOSAGE
     Route: 061
     Dates: start: 20060822, end: 20061012
  6. SELTOUCH [Concomitant]
     Indication: ANALGESIA
     Dosage: UNKNOWN DOSE AND FREQUENCY
     Dates: start: 20060818, end: 20061012
  7. OSTELUC [Concomitant]
     Indication: ANALGESIA
     Route: 048
     Dates: start: 20060818, end: 20060921
  8. PREDNISOLONE [Concomitant]
     Indication: ANALGESIA
     Route: 048
     Dates: start: 20060922, end: 20061012

REACTIONS (2)
  - INTERSTITIAL LUNG DISEASE [None]
  - PNEUMONIA CHLAMYDIAL [None]
